FAERS Safety Report 16618636 (Version 2)
Quarter: 2019Q3

REPORT INFORMATION
  Report Type: Spontaneous
  Country: DE (occurrence: DE)
  Receive Date: 20190723
  Receipt Date: 20190805
  Transmission Date: 20191004
  Serious: Yes (Other)
  Sender: FDA-Public Use
  Company Number: DE-JNJFOC-20190716485

PATIENT
  Sex: Male

DRUGS (2)
  1. DUROGESIC SMAT [Suspect]
     Active Substance: FENTANYL
     Indication: INTENSIVE CARE
     Route: 062
  2. LINEZOLID. [Interacting]
     Active Substance: LINEZOLID
     Indication: INTENSIVE CARE
     Route: 065

REACTIONS (4)
  - Serotonin syndrome [Recovering/Resolving]
  - Drug interaction [Recovering/Resolving]
  - Product use issue [Unknown]
  - Off label use [Unknown]
